FAERS Safety Report 15620201 (Version 1)
Quarter: 2018Q4

REPORT INFORMATION
  Report Type: Spontaneous
  Country: US (occurrence: US)
  Receive Date: 20181115
  Receipt Date: 20181115
  Transmission Date: 20190205
  Serious: Yes (Hospitalization)
  Sender: FDA-Public Use
  Company Number: US-ASTRAZENECA-2018SF48873

PATIENT
  Sex: Male

DRUGS (1)
  1. SYMBICORT [Suspect]
     Active Substance: BUDESONIDE\FORMOTEROL FUMARATE DIHYDRATE
     Dosage: TAKING 1 PUFF IN MORNING AND 1 IN THE EVENING, INSTEAD OF 2 IN THE MORNING AND 2 IN THE EVENING S...
     Route: 055

REACTIONS (6)
  - Confusional state [Unknown]
  - Intentional product use issue [Unknown]
  - Sciatic nerve neuropathy [Unknown]
  - Asthenia [Unknown]
  - Oxygen saturation decreased [Unknown]
  - Blood sodium decreased [Unknown]

NARRATIVE: CASE EVENT DATE: 201712
